FAERS Safety Report 11524531 (Version 1)
Quarter: 2015Q3

REPORT INFORMATION
  Report Type: Spontaneous
  Country: US (occurrence: US)
  Receive Date: 20150903
  Receipt Date: 20150903
  Transmission Date: 20151125
  Serious: No
  Sender: FDA-Public Use
  Company Number: US-ELI_LILLY_AND_COMPANY-US201001006064

PATIENT
  Age: 53 Year
  Sex: Female

DRUGS (17)
  1. REMERON [Concomitant]
     Active Substance: MIRTAZAPINE
  2. ALDACTONE [Concomitant]
     Active Substance: SPIRONOLACTONE
  3. SPIRONOLACTONE. [Concomitant]
     Active Substance: SPIRONOLACTONE
  4. HUMALOG [Suspect]
     Active Substance: INSULIN LISPRO
     Indication: DIABETES MELLITUS
     Dosage: 25 U, 2/D
     Dates: start: 2009
  5. BUMEX [Concomitant]
     Active Substance: BUMETANIDE
  6. MULTIVITAMIN [Concomitant]
     Active Substance: VITAMINS
  7. SYNTHROID [Concomitant]
     Active Substance: LEVOTHYROXINE SODIUM
  8. HUMALOG [Suspect]
     Active Substance: INSULIN LISPRO
     Dosage: 35 U, OTHER
     Dates: start: 2009
  9. LANTUS [Concomitant]
     Active Substance: INSULIN GLARGINE
     Dosage: 80 U, EACH EVENING
  10. VITAMIN B [Concomitant]
     Active Substance: VITAMIN B
  11. ISOSORBIDE. [Concomitant]
     Active Substance: ISOSORBIDE
  12. REQUIP [Concomitant]
     Active Substance: ROPINIROLE HYDROCHLORIDE
  13. NADOL [Concomitant]
  14. LACTULOSE. [Concomitant]
     Active Substance: LACTULOSE
  15. HUMALOG [Suspect]
     Active Substance: INSULIN LISPRO
     Dosage: 20 U, AS NEEDED
  16. PRILOSEC [Concomitant]
     Active Substance: OMEPRAZOLE MAGNESIUM
  17. POTASSIUM [Concomitant]
     Active Substance: POTASSIUM

REACTIONS (4)
  - Drug ineffective [Not Recovered/Not Resolved]
  - Confusional state [Not Recovered/Not Resolved]
  - Ascites [Not Recovered/Not Resolved]
  - Blood glucose increased [Not Recovered/Not Resolved]

NARRATIVE: CASE EVENT DATE: 200912
